FAERS Safety Report 7470270-4 (Version None)
Quarter: 2011Q2

REPORT INFORMATION
  Report Type: 
  Country: None (occurrence: None)
  Receive Date: 20110510
  Receipt Date: 20110427
  Transmission Date: 20111010
  Serious: Yes (Other)
  Sender: FDA-Public Use
  Company Number: CA-JNJFOC-20110500251

PATIENT
  Sex: Male
  Weight: 117.8 kg

DRUGS (7)
  1. REMICADE [Suspect]
     Indication: CROHN'S DISEASE
     Route: 042
  2. HYDROCHLOROTHIAZIDE [Concomitant]
  3. MUSCLE RELAXANT [Concomitant]
  4. ASPIRIN [Concomitant]
  5. ALTACE [Concomitant]
  6. METOPROLOL SUCCINATE [Concomitant]
  7. ALLOPURINOL [Concomitant]

REACTIONS (2)
  - NEPHROLITHIASIS [None]
  - CROHN'S DISEASE [None]
